FAERS Safety Report 5465741-6 (Version None)
Quarter: 2007Q3

REPORT INFORMATION
  Report Type: 
  Country: None (occurrence: None)
  Receive Date: 20070924
  Receipt Date: 20070918
  Transmission Date: 20080115
  Serious: Yes (Hospitalization)
  Sender: FDA-Public Use
  Company Number: A0648874A

PATIENT
  Age: 57 Year
  Sex: Female

DRUGS (12)
  1. PAROXETINE [Suspect]
     Indication: DEPRESSION
     Route: 048
  2. PAXIL [Suspect]
     Indication: DEPRESSION
     Route: 048
  3. REQUIP [Suspect]
     Indication: RESTLESS LEGS SYNDROME
     Dosage: 4MG PER DAY
     Route: 048
  4. SYNTHROID [Concomitant]
  5. EFFEXOR [Concomitant]
  6. LISINOPRIL [Concomitant]
  7. HYDROCHLOROTHIAZIDE [Concomitant]
  8. MOTRIN [Concomitant]
  9. ANTIBIOTIC OINTMENT [Concomitant]
  10. HYDROGEN PEROXIDE SOLUTION [Concomitant]
  11. MINOCYCLINE HCL [Concomitant]
  12. HYDROGEN PEROXIDE SOLUTION [Concomitant]

REACTIONS (8)
  - ACNE [None]
  - DEPENDENCE [None]
  - DISTURBANCE IN ATTENTION [None]
  - DRUG INEFFECTIVE [None]
  - IMPAIRED HEALING [None]
  - OBSESSIVE-COMPULSIVE DISORDER [None]
  - SKIN CANCER [None]
  - SKIN REACTION [None]
